FAERS Safety Report 5264105-8 (Version None)
Quarter: 2007Q1

REPORT INFORMATION
  Report Type: 
  Country: None (occurrence: None)
  Receive Date: 20070309
  Receipt Date: 20070223
  Transmission Date: 20070707
  Serious: Yes (Hospitalization)
  Sender: FDA-Public Use
  Company Number: 430003M07DEU

PATIENT
  Age: 38 Year
  Sex: Female

DRUGS (1)
  1. NOVANTRONE [Suspect]
     Dosage: 18.5 MG, INTRAVENOUS (NOT OTHERWISE SPECIFIED)
     Route: 042
     Dates: start: 20060101, end: 20070216

REACTIONS (2)
  - DYSARTHRIA [None]
  - HEMIPARESIS [None]
